FAERS Safety Report 8186202-X (Version None)
Quarter: 2012Q1

REPORT INFORMATION
  Report Type: 
  Country: None (occurrence: None)
  Receive Date: 20120306
  Receipt Date: 20120302
  Transmission Date: 20120608
  Serious: No
  Sender: FDA-Public Use
  Company Number: US-PFIZER INC-2012057135

PATIENT
  Sex: Female
  Weight: 75.737 kg

DRUGS (2)
  1. MOBIC [Concomitant]
     Indication: JOINT INJURY
     Dosage: 15 MG, 1X/DAY
     Route: 048
  2. ACCUPRIL [Suspect]
     Indication: HYPERTENSION
     Dosage: 40 MG, 1X/DAY
     Route: 048

REACTIONS (3)
  - DRUG DOSE OMISSION [None]
  - STRESS [None]
  - MICTURITION DISORDER [None]
